FAERS Safety Report 19268948 (Version 1)
Quarter: 2021Q2

REPORT INFORMATION
  Report Type: Spontaneous
  Country: PK (occurrence: PK)
  Receive Date: 20210517
  Receipt Date: 20210517
  Transmission Date: 20210717
  Serious: Yes (Other)
  Sender: FDA-Public Use
  Company Number: PK-PFIZER INC-2021492349

PATIENT
  Age: 57 Year
  Sex: Male

DRUGS (1)
  1. SUTENT [Suspect]
     Active Substance: SUNITINIB MALATE
     Indication: GASTROINTESTINAL STROMAL TUMOUR
     Dosage: 50 MG, ONCE DAILY, 4 WEEKS ON, 2 WEEKS OFF
     Route: 048

REACTIONS (3)
  - Depressed level of consciousness [Unknown]
  - Restlessness [Unknown]
  - Somnolence [Unknown]
